FAERS Safety Report 4900560-8 (Version None)
Quarter: 2006Q1

REPORT INFORMATION
  Report Type: 
  Country: None (occurrence: None)
  Receive Date: 20060201
  Receipt Date: 20060119
  Transmission Date: 20060701
  Serious: Yes (Hospitalization)
  Sender: FDA-Public Use
  Company Number: 221296

PATIENT
  Age: 76 Year
  Sex: Female
  Weight: 52 kg

DRUGS (3)
  1. AVASTIN [Suspect]
     Indication: TRANSITIONAL CELL CARCINOMA
     Dosage: 15 MG/KG, Q3W, INTRAVENOUS
     Route: 042
     Dates: start: 20051125, end: 20060109
  2. TAXOL [Suspect]
     Indication: TRANSITIONAL CELL CARCINOMA
     Dosage: 15 MG/KG Q3W, INTRAVENOUS
     Route: 042
  3. CARBOPLATIN [Suspect]
     Indication: TRANSITIONAL CELL CARCINOMA

REACTIONS (6)
  - CEREBRAL ISCHAEMIA [None]
  - EMPHYSEMA [None]
  - GRAND MAL CONVULSION [None]
  - HYPERTENSIVE ENCEPHALOPATHY [None]
  - NEUTROPHIL COUNT ABNORMAL [None]
  - PLATELET COUNT DECREASED [None]
